FAERS Safety Report 4705624-X (Version None)
Quarter: 2005Q3

REPORT INFORMATION
  Report Type: 
  Country: None (occurrence: None)
  Receive Date: 20050701
  Receipt Date: 20050617
  Transmission Date: 20060218
  Serious: Yes (Hospitalization)
  Sender: FDA-Public Use
  Company Number: FR-BOEHRINGER INGELHEIM PHARMACEUTICALS, INC.-2005-FF-00438FF

PATIENT
  Age: 51 Year
  Sex: Female

DRUGS (3)
  1. VIRAMUNE [Suspect]
     Indication: HIV INFECTION
     Route: 048
     Dates: start: 20050310, end: 20050503
  2. PREVISCAN [Concomitant]
     Indication: PHLEBITIS
     Route: 048
     Dates: start: 20050415, end: 20050502
  3. COMBIVIR [Concomitant]
     Indication: HIV INFECTION
     Dosage: TWO TABLETS DAILY
     Route: 048
     Dates: end: 20050503

REACTIONS (5)
  - HEPATIC STEATOSIS [None]
  - HEPATITIS CHOLESTATIC [None]
  - HEPATOMEGALY [None]
  - PANCREATITIS ACUTE [None]
  - THROMBOPHLEBITIS [None]
